FAERS Safety Report 5601386-2 (Version None)
Quarter: 2008Q1

REPORT INFORMATION
  Report Type: 
  Country: None (occurrence: None)
  Receive Date: 20080124
  Receipt Date: 20080113
  Transmission Date: 20080703
  Serious: Yes (Other)
  Sender: FDA-Public Use
  Company Number: GB-ROCHE-541349

PATIENT
  Age: 50 Year
  Sex: Female
  Weight: 85.7 kg

DRUGS (3)
  1. ORLISTAT [Suspect]
     Indication: OBESITY
     Route: 048
     Dates: start: 20070807, end: 20071201
  2. 1 CONCOMITANT DRUG [Concomitant]
     Indication: HYPERTENSION
  3. 1 CONCOMITANT DRUG [Concomitant]

REACTIONS (1)
  - NEOPLASM SKIN [None]
